FAERS Safety Report 21547771 (Version 4)
Quarter: 2023Q1

REPORT INFORMATION
  Report Type: Spontaneous
  Country: GB (occurrence: GB)
  Receive Date: 20221103
  Receipt Date: 20230208
  Transmission Date: 20230418
  Serious: Yes (Hospitalization, Disabling, Other)
  Sender: FDA-Public Use
  Company Number: GB-CELLTRION INC.-2020GB035195

PATIENT
  Age: 73 Year
  Sex: Male
  Weight: 100 kg

DRUGS (51)
  1. BENDAMUSTINE [Suspect]
     Active Substance: BENDAMUSTINE
     Indication: Mantle cell lymphoma
     Dosage: 4 DOSAGE FORM, QD(START DATE:09-MAR-2021,STOP DATE:09-MAR-2021)
     Route: 065
     Dates: start: 20200309
  2. BENDAMUSTINE [Suspect]
     Active Substance: BENDAMUSTINE
     Dosage: 124 DOSAGE FORM
     Route: 065
     Dates: start: 20200309
  3. BENDAMUSTINE [Suspect]
     Active Substance: BENDAMUSTINE
     Dosage: 12 DOSAGE FORM
     Route: 065
     Dates: start: 20200309
  4. BENDAMUSTINE [Suspect]
     Active Substance: BENDAMUSTINE
     Dosage: UNK (1X/DAY (DOSAGE FORM: 201))
     Route: 065
     Dates: start: 20200309
  5. BENDAMUSTINE [Suspect]
     Active Substance: BENDAMUSTINE
     Dosage: 1 DOSAGE FORM, 1 DF (DOSE FORM: 230) EVERY 1 DAY
     Route: 065
     Dates: start: 20200309, end: 20200309
  6. BENDAMUSTINE [Suspect]
     Active Substance: BENDAMUSTINE
     Dosage: 12 DOSAGE FORM (DOSE FORM: 120)
     Route: 065
     Dates: start: 20200309
  7. BENDAMUSTINE [Suspect]
     Active Substance: BENDAMUSTINE
     Dosage: 1 (DOSAGE FORM) (LAST DOSE ADMINISTERED ON 09-MAR-2020)
     Route: 042
     Dates: start: 20200309, end: 20200309
  8. BENDAMUSTINE [Suspect]
     Active Substance: BENDAMUSTINE
     Dosage: 120 DOSAGE FORM
     Route: 065
     Dates: start: 20200309
  9. BENDAMUSTINE [Suspect]
     Active Substance: BENDAMUSTINE
     Dosage: 1 DOSAGE FORM, QD (START DATE: 09-MAR-2021DOSE FORM OF 365)
     Route: 065
  10. BENDAMUSTINE [Suspect]
     Active Substance: BENDAMUSTINE
     Dosage: UNK, DOSE FORM: 16
     Route: 065
     Dates: start: 20200309, end: 20200309
  11. BENDAMUSTINE [Suspect]
     Active Substance: BENDAMUSTINE
     Dosage: 4 DOSAGE FORM, QD
     Route: 065
     Dates: start: 20200309, end: 20200309
  12. BENDAMUSTINE [Suspect]
     Active Substance: BENDAMUSTINE
     Dosage: 4 DOSAGE FORM, QD(START DATE:09-MAR-2021,STOP DATE:09-MAR-2021)
     Route: 065
     Dates: start: 20210309
  13. BENDAMUSTINE [Suspect]
     Active Substance: BENDAMUSTINE
     Dosage: UNK, QD (LAST DOSE ADINISTERED ON 09-MAR-2020)
     Route: 042
     Dates: start: 20200309, end: 20200309
  14. BENDAMUSTINE [Suspect]
     Active Substance: BENDAMUSTINE
     Dosage: 120 (LAST DOSE ADMINISTERED ON 09-MAR-2020) CUMULATIVE DOSE TO FIRST REACTION: 4.0 {DF}
     Route: 042
     Dates: start: 20200309, end: 20200309
  15. BENDAMUSTINE [Suspect]
     Active Substance: BENDAMUSTINE
     Dosage: UNK
     Route: 042
     Dates: start: 20200309, end: 20200309
  16. BENDAMUSTINE [Suspect]
     Active Substance: BENDAMUSTINE
     Dosage: UNK
     Route: 065
  17. BENDAMUSTINE [Suspect]
     Active Substance: BENDAMUSTINE
     Dosage: 12 DOSAGE FORM
     Route: 042
     Dates: start: 20200309
  18. BENDAMUSTINE [Suspect]
     Active Substance: BENDAMUSTINE
     Dosage: 1 DOSAGE FORM, 1 DF (DOSE FORM: 230)
     Route: 065
     Dates: start: 20200309, end: 20200309
  19. CYTARABINE [Suspect]
     Active Substance: CYTARABINE
     Indication: Mantle cell lymphoma
     Dosage: 20 MG, QD (ON 11 MAR2 020,
     Route: 065
     Dates: start: 20210303
  20. CYTARABINE [Suspect]
     Active Substance: CYTARABINE
     Dosage: 20 MG, PHARMACEUTICAL DOSE FORM: 16
     Route: 065
     Dates: start: 20200115, end: 20200303
  21. CYTARABINE [Suspect]
     Active Substance: CYTARABINE
     Dosage: 20 MG, QD
     Route: 041
     Dates: start: 20200309, end: 20200311
  22. CYTARABINE [Suspect]
     Active Substance: CYTARABINE
     Dosage: UNK MOST RECENT DOSE, CUMULATIVE DOSE 1040 MG (DOASGE FORM: 386)
     Route: 065
     Dates: start: 20200311
  23. CYTARABINE [Suspect]
     Active Substance: CYTARABINE
     Dosage: 60 MG, QD
     Route: 042
     Dates: start: 20200311
  24. CYTARABINE [Suspect]
     Active Substance: CYTARABINE
     Dosage: ADDITIONAL INFO: LAST ADMINISTERED ON 11-MAR-2020, MOST RECENT DOSE (DOSE FORM: 386)
     Route: 065
     Dates: start: 20200311
  25. CYTARABINE [Suspect]
     Active Substance: CYTARABINE
     Dosage: UNK
     Route: 065
     Dates: start: 20210309, end: 20210311
  26. CYTARABINE [Suspect]
     Active Substance: CYTARABINE
     Dosage: 80 MILLIGRAM, QD CUMULATIVE DOSE TO FIRST REACTION: 80.0 MG
     Route: 042
     Dates: start: 20200309, end: 20200309
  27. CYTARABINE [Suspect]
     Active Substance: CYTARABINE
     Dosage: 20 MG, QD, CUMULATIVE DOSE OF 1040MG
     Route: 065
     Dates: start: 20200115, end: 20200303
  28. CYTARABINE [Suspect]
     Active Substance: CYTARABINE
     Dosage: UNK (DOSAGE TEXT: 60 MG)
     Route: 065
     Dates: start: 20200311
  29. CYTARABINE [Suspect]
     Active Substance: CYTARABINE
     Dosage: 20 MG, QD, CUMULATIVE DOSE OF 1040 MG (DOSE FORM: 386)
     Route: 041
     Dates: start: 20200309, end: 20200311
  30. CYTARABINE [Suspect]
     Active Substance: CYTARABINE
     Dosage: (ON 11 MAR2 020, HE RECEIVED MOST RECENT DOSE OF CYTARABINE PRIOR TO EVENT ONSET, DOSAGE)
     Route: 065
     Dates: start: 20210309, end: 20210311
  31. CYTARABINE [Suspect]
     Active Substance: CYTARABINE
     Dosage: 20 MG, QD (ON 11 MAR2 020
     Route: 065
     Dates: start: 20200309, end: 20210311
  32. CYTARABINE [Suspect]
     Active Substance: CYTARABINE
     Dosage: MOST RECENT DOSE ON 11/MAR/2020
     Route: 065
     Dates: start: 20200309, end: 20200311
  33. CYTARABINE [Suspect]
     Active Substance: CYTARABINE
     Dosage: UNK
     Route: 065
     Dates: start: 20200311
  34. CYTARABINE [Suspect]
     Active Substance: CYTARABINE
     Dosage: UNK
     Route: 065
     Dates: start: 20200303
  35. CYTARABINE [Suspect]
     Active Substance: CYTARABINE
     Dosage: MOST RECENT DOSE ON 11/MAR/2020
     Route: 065
     Dates: start: 20200115, end: 20200303
  36. CYTARABINE [Suspect]
     Active Substance: CYTARABINE
     Dosage: 20 MG, QD, ADDITIONAL INFO: LAST ADMINISTERED ON 11-MAR-2020 (DOSE FORM: 386)
     Route: 041
     Dates: start: 20210309, end: 20210311
  37. CYTARABINE [Suspect]
     Active Substance: CYTARABINE
     Dosage: 20 MG, QD, LAST ADMINISTERED ON 11-MAR-2020,MOST RECENT DOSE OF CYTARABINE (DOSE FORM: 386)
     Route: 041
     Dates: start: 20200115, end: 20200303
  38. CYTARABINE [Suspect]
     Active Substance: CYTARABINE
     Dosage: UNK
     Route: 065
  39. PARSACLISIB [Suspect]
     Active Substance: PARSACLISIB
     Indication: Mantle cell lymphoma
     Dosage: 20 MILLIGRAM DAILY;ADDITIONAL INFO: INCB 50465 (MOST RECENT DOSE RECEIVED ON 03-MAR-2020)((DOSE PRIO
     Route: 048
     Dates: start: 20200115, end: 20200303
  40. PARSACLISIB [Suspect]
     Active Substance: PARSACLISIB
     Dosage: 20 MG, QD (DOSE PRIOR TO THE SERIOUS ADVERSE EVENTS (SAES) WAS TAKEN ON 03MAR2020), 245, INCB 50465U
     Route: 048
     Dates: start: 20200115, end: 20200303
  41. RITUXIMAB [Suspect]
     Active Substance: RITUXIMAB
     Indication: Mantle cell lymphoma
     Dosage: 1 DF (DOSE FORM:16)
     Route: 042
     Dates: start: 20200303, end: 20200309
  42. RITUXIMAB [Suspect]
     Active Substance: RITUXIMAB
     Dosage: 318 {DF}
     Route: 065
     Dates: start: 20200303, end: 20200309
  43. RITUXIMAB [Suspect]
     Active Substance: RITUXIMAB
     Dosage: 1 DF EVERY 1 DAY (DOSE FORM: 318)
     Route: 065
     Dates: start: 20200309, end: 20200309
  44. RITUXIMAB [Suspect]
     Active Substance: RITUXIMAB
     Dosage: 1 DF, QD (1X/DAY (DOSAGE FORM: 16) LAST DOSE ADMINISTERED ON 09-MAR-2020
     Route: 041
     Dates: start: 20200309, end: 20200309
  45. RITUXIMAB [Suspect]
     Active Substance: RITUXIMAB
     Dosage: 318 DF (DOSE FORM: 230)
     Route: 042
     Dates: start: 20200303, end: 20200309
  46. MEROPENEM [Concomitant]
     Active Substance: MEROPENEM
     Indication: Cough
     Dosage: UNK
     Route: 065
     Dates: start: 20200319
  47. MEROPENEM [Concomitant]
     Active Substance: MEROPENEM
     Indication: Malaise
     Dosage: UNK
     Route: 065
     Dates: start: 20200309
  48. MEROPENEM [Concomitant]
     Active Substance: MEROPENEM
     Indication: Decreased appetite
     Dosage: UNK
     Route: 065
  49. ACETAMINOPHEN [Concomitant]
     Active Substance: ACETAMINOPHEN
     Indication: Malaise
     Dosage: UNK
     Route: 065
     Dates: start: 20200319
  50. ACETAMINOPHEN [Concomitant]
     Active Substance: ACETAMINOPHEN
     Indication: Decreased appetite
     Dosage: UNK
     Route: 065
     Dates: start: 20200309
  51. ACETAMINOPHEN [Concomitant]
     Active Substance: ACETAMINOPHEN
     Indication: Cough

REACTIONS (8)
  - Neutropenic sepsis [Recovered/Resolved]
  - Neutrophil count decreased [Recovered/Resolved]
  - Product use in unapproved indication [Unknown]
  - Off label use [Unknown]
  - Bronchitis [Recovered/Resolved]
  - Bronchitis [Recovered/Resolved]
  - Intentional product use issue [Unknown]
  - Pneumonia [Recovered/Resolved]

NARRATIVE: CASE EVENT DATE: 20200309
